FAERS Safety Report 8780205 (Version 1)
Quarter: 2012Q4

REPORT INFORMATION
  Report Type: Spontaneous
  Country: US (occurrence: None)
  Receive Date: 20120904
  Receipt Date: 20120904
  Transmission Date: 20130627
  Serious: No
  Sender: FDA-Public Use
  Company Number: None

PATIENT
  Sex: Female

DRUGS (1)
  1. ULTRAM [Suspect]
     Route: 048

REACTIONS (5)
  - Urinary incontinence [None]
  - Nausea [None]
  - Muscle spasms [None]
  - Product substitution issue [None]
  - Treatment failure [None]
